FAERS Safety Report 5179294-3 (Version None)
Quarter: 2006Q4

REPORT INFORMATION
  Report Type: 
  Country: None (occurrence: None)
  Receive Date: 20061219
  Receipt Date: 20020409
  Transmission Date: 20070319
  Serious: Yes (Other)
  Sender: FDA-Public Use
  Company Number: US-GLAXOSMITHKLINE-A0365417A

PATIENT
  Age: 53 Year
  Sex: Female

DRUGS (4)
  1. AVANDIA [Suspect]
     Route: 048
     Dates: start: 20010201
  2. AVANDAMET [Suspect]
     Route: 048
     Dates: start: 20051101
  3. REGULAR INSULIN [Concomitant]
  4. NPH INSULIN [Concomitant]

REACTIONS (12)
  - ANAL DISCOMFORT [None]
  - ANXIETY [None]
  - BODY TEMPERATURE INCREASED [None]
  - BRONCHITIS [None]
  - DYSPEPSIA [None]
  - FLUID RETENTION [None]
  - GASTROINTESTINAL DISORDER [None]
  - HYPOAESTHESIA [None]
  - MONOPLEGIA [None]
  - NASAL CONGESTION [None]
  - PARALYSIS [None]
  - PRODUCTIVE COUGH [None]
